FAERS Safety Report 5132206-0 (Version None)
Quarter: 2006Q4

REPORT INFORMATION
  Report Type: 
  Country: None (occurrence: None)
  Receive Date: 20061017
  Receipt Date: 20061004
  Transmission Date: 20070319
  Serious: Yes (Other)
  Sender: FDA-Public Use
  Company Number: 2005BI015698

PATIENT
  Age: 51 Year
  Sex: Female

DRUGS (3)
  1. AVONEX [Suspect]
     Indication: MULTIPLE SCLEROSIS
     Dosage: 30 UG; UNKNOWN; IM
     Route: 030
     Dates: start: 20010801, end: 20050101
  2. VITAMIN CAP [Concomitant]
  3. AMANTADINE HCL [Concomitant]

REACTIONS (4)
  - EYE DISORDER [None]
  - PERIPHLEBITIS [None]
  - SARCOIDOSIS [None]
  - VISUAL ACUITY REDUCED [None]
